FAERS Safety Report 9814498 (Version 2)
Quarter: 2014Q1

REPORT INFORMATION
  Report Type: Spontaneous
  Country: US (occurrence: US)
  Receive Date: 20140113
  Receipt Date: 20140113
  Transmission Date: 20141002
  Serious: No
  Sender: FDA-Public Use
  Company Number: US-BIOGENIDEC-2013BI072026

PATIENT
  Age: 40 Year
  Sex: Female

DRUGS (16)
  1. TECFIDERA [Suspect]
     Indication: MULTIPLE SCLEROSIS
     Route: 048
     Dates: start: 20130719, end: 20130725
  2. TECFIDERA [Suspect]
     Indication: MULTIPLE SCLEROSIS
     Route: 048
     Dates: start: 20130726
  3. TECFIDERA [Suspect]
     Indication: MULTIPLE SCLEROSIS
     Route: 048
     Dates: start: 20130729
  4. TECFIDERA [Suspect]
     Indication: MULTIPLE SCLEROSIS
     Route: 048
     Dates: start: 20130809
  5. TECFIDERA [Suspect]
     Indication: MULTIPLE SCLEROSIS
  6. TAGAMET [Concomitant]
     Indication: EPILEPSY
  7. BACTRIM [Concomitant]
  8. DYAZIDE [Concomitant]
  9. EXCEDRIN MIGRAINE [Concomitant]
  10. KEPPRA [Concomitant]
  11. LEXAPRO [Concomitant]
  12. LOPERAMIDE HCL [Concomitant]
  13. VITAMIN C [Concomitant]
  14. VITAMIN D [Concomitant]
  15. XANAX [Concomitant]
  16. ZOFRAN [Concomitant]

REACTIONS (11)
  - Palpitations [Recovered/Resolved with Sequelae]
  - Hyperhidrosis [Recovered/Resolved with Sequelae]
  - Underdose [Not Recovered/Not Resolved]
  - Dizziness [Not Recovered/Not Resolved]
  - Loss of consciousness [Not Recovered/Not Resolved]
  - Diarrhoea [Not Recovered/Not Resolved]
  - Nausea [Not Recovered/Not Resolved]
  - Abdominal discomfort [Recovered/Resolved with Sequelae]
  - Erythema [Recovered/Resolved with Sequelae]
  - Flushing [Not Recovered/Not Resolved]
  - Vomiting [Not Recovered/Not Resolved]
